FAERS Safety Report 8247157-2 (Version None)
Quarter: 2012Q1

REPORT INFORMATION
  Report Type: 
  Country: None (occurrence: None)
  Receive Date: 20120330
  Receipt Date: 20120322
  Transmission Date: 20120608
  Serious: Yes (Hospitalization, Other)
  Sender: FDA-Public Use
  Company Number: US-JNJFOC-20120212278

PATIENT
  Sex: Female
  Weight: 81.65 kg

DRUGS (3)
  1. REMICADE [Suspect]
     Route: 042
  2. PREDNISONE TAB [Suspect]
     Indication: INTESTINAL OBSTRUCTION
     Route: 065
     Dates: start: 20120201
  3. REMICADE [Suspect]
     Indication: CROHN'S DISEASE
     Route: 042
     Dates: start: 20120203

REACTIONS (4)
  - MUSCULAR WEAKNESS [None]
  - INTESTINAL OBSTRUCTION [None]
  - DRUG INEFFECTIVE [None]
  - GASTRITIS [None]
